FAERS Safety Report 14930211 (Version 1)
Quarter: 2018Q2

REPORT INFORMATION
  Report Type: Spontaneous
  Country: US (occurrence: US)
  Receive Date: 20180522
  Receipt Date: 20180522
  Transmission Date: 20180711
  Serious: Yes (Death)
  Sender: FDA-Public Use
  Company Number: None

PATIENT
  Age: 38 Year
  Sex: Female
  Weight: 61.2 kg

DRUGS (2)
  1. KRATOM [Suspect]
     Active Substance: MITRAGYNINE\HERBALS
     Route: 048
  2. ALCOHOL. [Concomitant]
     Active Substance: ALCOHOL

REACTIONS (2)
  - Alcohol use [None]
  - Headache [None]

NARRATIVE: CASE EVENT DATE: 20180519
